FAERS Safety Report 8844104 (Version 7)
Quarter: 2013Q1

REPORT INFORMATION
  Report Type: Spontaneous
  Country: CA (occurrence: CA)
  Receive Date: 20121016
  Receipt Date: 20130320
  Transmission Date: 20140127
  Serious: Yes (Death, Other)
  Sender: FDA-Public Use
  Company Number: PHHY2012CA040101

PATIENT
  Age: 84 Year
  Sex: Male

DRUGS (4)
  1. ZOMETA [Suspect]
     Indication: PROSTATE CANCER
     Dosage: 4 MG, EVERY 4 WEEKS
     Route: 042
     Dates: start: 20051201
  2. ZOMETA [Suspect]
     Dosage: 4 MG, EVERY 4 WEEKS
     Route: 042
     Dates: start: 20120508
  3. ZOMETA [Suspect]
     Dosage: 4 MG, EVERY 4 WEEKS
     Route: 042
     Dates: start: 20130129
  4. ZOMETA [Suspect]
     Dosage: 4 MG, EVERY 4 WEEKS
     Route: 042
     Dates: start: 20130226, end: 20130226

REACTIONS (16)
  - Death [Fatal]
  - Parkinson^s disease [Unknown]
  - Dysarthria [Recovering/Resolving]
  - Cerebral haemorrhage [Unknown]
  - Aphasia [Recovering/Resolving]
  - Confusional state [Recovering/Resolving]
  - Rhinorrhoea [Unknown]
  - Weight decreased [Unknown]
  - Fall [Unknown]
  - Gait disturbance [Unknown]
  - Blood pressure systolic increased [Unknown]
  - Cough [Unknown]
  - Malaise [Unknown]
  - Pain in extremity [Unknown]
  - Fatigue [Unknown]
  - Dyspnoea [Unknown]
